FAERS Safety Report 5055780-1 (Version None)
Quarter: 2006Q3

REPORT INFORMATION
  Report Type: 
  Country: None (occurrence: None)
  Receive Date: 20060714
  Receipt Date: 20060705
  Transmission Date: 20061208
  Serious: Yes (Death, Other)
  Sender: FDA-Public Use
  Company Number: 2006-07-0253

PATIENT
  Sex: Female

DRUGS (2)
  1. PEG-INTRON [Suspect]
     Indication: HEPATITIS C
     Dates: end: 20060401
  2. REBETOL [Suspect]
     Indication: HEPATITIS C
     Dosage: ORAL
     Route: 048
     Dates: end: 20060401

REACTIONS (3)
  - BREAST CANCER FEMALE [None]
  - THERAPY NON-RESPONDER [None]
  - VICTIM OF HOMICIDE [None]
